FAERS Safety Report 8501468-1 (Version None)
Quarter: 2012Q3

REPORT INFORMATION
  Report Type: 
  Country: None (occurrence: None)
  Receive Date: 20120710
  Receipt Date: 20120625
  Transmission Date: 20120928
  Serious: Yes (Other)
  Sender: FDA-Public Use
  Company Number: JP-SHIRE-ALL1-2012-03204

PATIENT
  Age: 13 Year
  Sex: Female

DRUGS (1)
  1. MIDODRINE HYDROCHLORIDE [Suspect]
     Indication: ORTHOSTATIC INTOLERANCE
     Dosage: 2 MG, 2X/DAY:BID
     Route: 048
     Dates: start: 20120611

REACTIONS (1)
  - URTICARIA [None]
